FAERS Safety Report 8995627 (Version 1)
Quarter: 2013Q1

REPORT INFORMATION
  Report Type: Spontaneous
  Country: US (occurrence: US)
  Receive Date: 20130103
  Receipt Date: 20130103
  Transmission Date: 20140127
  Serious: No
  Sender: FDA-Public Use
  Company Number: US-ABBOTT-12P-163-1014247-00

PATIENT
  Age: 82 None
  Sex: Female
  Weight: 63.56 kg

DRUGS (2)
  1. SYNTHROID [Suspect]
     Indication: HYPOTHYROIDISM
     Dates: start: 1947, end: 20121121
  2. SYNTHROID [Suspect]
     Dates: start: 20121122

REACTIONS (3)
  - Thyroid function test abnormal [Unknown]
  - Weight decreased [Recovered/Resolved]
  - Heart rate increased [Recovered/Resolved]
